FAERS Safety Report 13553050 (Version 3)
Quarter: 2018Q4

REPORT INFORMATION
  Report Type: Spontaneous
  Country: US (occurrence: US)
  Receive Date: 20170517
  Receipt Date: 20181121
  Transmission Date: 20190204
  Serious: No
  Sender: FDA-Public Use
  Company Number: US-PFIZER INC-2017215095

PATIENT
  Sex: Female
  Weight: 86.17 kg

DRUGS (4)
  1. LYRICA [Suspect]
     Active Substance: PREGABALIN
     Indication: FIBROMYALGIA
  2. LYRICA [Suspect]
     Active Substance: PREGABALIN
     Indication: PAIN
     Dosage: 150 MG, 3X/DAY
     Route: 048
  3. OXYCODONE [Concomitant]
     Active Substance: OXYCODONE
     Indication: PAIN
     Dosage: 10-325 MG EVERY 8 TO 12 HOURS, IF PAIN IS EXTREME TAKE EVERY 8 HOURS
     Route: 048
  4. NORCO [Concomitant]
     Active Substance: ACETAMINOPHEN\HYDROCODONE BITARTRATE
     Dosage: UNK

REACTIONS (9)
  - Headache [Unknown]
  - Tremor [Unknown]
  - Vision blurred [Unknown]
  - Depression [Unknown]
  - Sciatica [Unknown]
  - Pruritus [Unknown]
  - Neuralgia [Unknown]
  - Memory impairment [Unknown]
  - Product use issue [Unknown]
